FAERS Safety Report 22131415 (Version 1)
Quarter: 2023Q1

REPORT INFORMATION
  Report Type: Spontaneous
  Country: US (occurrence: None)
  Receive Date: 20230322
  Receipt Date: 20230322
  Transmission Date: 20230417
  Serious: Yes (Death)
  Sender: FDA-Public Use
  Company Number: None

PATIENT
  Age: 36 Year
  Sex: Female
  Weight: 73.62 kg

DRUGS (11)
  1. CAPECITABINE [Suspect]
     Active Substance: CAPECITABINE
     Indication: Breast cancer female
     Dosage: FREQUENCY : TWICE A DAY;?
     Route: 048
  2. GABAPENTIN [Concomitant]
     Active Substance: GABAPENTIN
  3. IBUPROFEN [Concomitant]
     Active Substance: IBUPROFEN
  4. LIDOCAINE [Concomitant]
     Active Substance: LIDOCAINE
  5. LORAZEPAM [Concomitant]
     Active Substance: LORAZEPAM
  6. METHADONE [Concomitant]
     Active Substance: METHADONE HYDROCHLORIDE
  7. MIRALAX [Concomitant]
     Active Substance: POLYETHYLENE GLYCOL 3350
  8. NALOXONE [Concomitant]
     Active Substance: NALOXONE
  9. OXYCODONE [Concomitant]
     Active Substance: OXYCODONE
  10. TRAMADOL [Concomitant]
     Active Substance: TRAMADOL
  11. TYLENOL [Concomitant]

REACTIONS (1)
  - Death [None]
